FAERS Safety Report 7020193-X (Version None)
Quarter: 2010Q3

REPORT INFORMATION
  Report Type: 
  Country: None (occurrence: None)
  Receive Date: 20100927
  Receipt Date: 20100923
  Transmission Date: 20110219
  Serious: Yes (Other)
  Sender: FDA-Public Use
  Company Number: 1022556-2010-00060

PATIENT
  Sex: Male

DRUGS (1)
  1. ICY HOT MEDICATED ROLL - GENERIC [Suspect]
     Indication: MYALGIA
     Dosage: TOPICAL
     Route: 061

REACTIONS (2)
  - APPLICATION SITE BURN [None]
  - BURNS THIRD DEGREE [None]
